FAERS Safety Report 25061866 (Version 5)
Quarter: 2025Q2

REPORT INFORMATION
  Report Type: Spontaneous
  Country: US (occurrence: US)
  Receive Date: 20250311
  Receipt Date: 20250618
  Transmission Date: 20250717
  Serious: Yes (Disabling, Other)
  Sender: AMGEN
  Company Number: US-AMGEN-USASP2025046653

PATIENT
  Age: 75 Year
  Sex: Female

DRUGS (37)
  1. TEPEZZA [Suspect]
     Active Substance: TEPROTUMUMAB-TRBW
     Indication: Graves^ disease
     Route: 040
     Dates: start: 20230207
  2. TEPEZZA [Suspect]
     Active Substance: TEPROTUMUMAB-TRBW
     Indication: Endocrine ophthalmopathy
     Route: 040
     Dates: start: 20230302
  3. TEPEZZA [Suspect]
     Active Substance: TEPROTUMUMAB-TRBW
     Route: 040
     Dates: start: 20230322
  4. TEPEZZA [Suspect]
     Active Substance: TEPROTUMUMAB-TRBW
     Route: 040
     Dates: start: 20230413
  5. TEPEZZA [Suspect]
     Active Substance: TEPROTUMUMAB-TRBW
     Route: 040
     Dates: start: 20230504
  6. PROLIA [Suspect]
     Active Substance: DENOSUMAB
     Indication: Product used for unknown indication
     Dosage: 60 MILLIGRAM PER MILLILITRE, Q6MO (1 MILLILITER)
     Route: 058
  7. SODIUM CHLORIDE [Concomitant]
     Active Substance: SODIUM CHLORIDE
  8. SOLU-MEDROL [Concomitant]
     Active Substance: METHYLPREDNISOLONE SODIUM SUCCINATE
     Indication: Toxic goitre
     Route: 040
     Dates: start: 20220823
  9. SOLU-MEDROL [Concomitant]
     Active Substance: METHYLPREDNISOLONE SODIUM SUCCINATE
     Route: 040
     Dates: start: 20220830
  10. SOLU-MEDROL [Concomitant]
     Active Substance: METHYLPREDNISOLONE SODIUM SUCCINATE
     Route: 040
     Dates: start: 20220909
  11. SOLU-MEDROL [Concomitant]
     Active Substance: METHYLPREDNISOLONE SODIUM SUCCINATE
     Route: 040
     Dates: start: 20220913
  12. SOLU-MEDROL [Concomitant]
     Active Substance: METHYLPREDNISOLONE SODIUM SUCCINATE
     Route: 040
     Dates: start: 20220920
  13. SOLU-MEDROL [Concomitant]
     Active Substance: METHYLPREDNISOLONE SODIUM SUCCINATE
     Route: 040
     Dates: start: 20220927
  14. SOLU-MEDROL [Concomitant]
     Active Substance: METHYLPREDNISOLONE SODIUM SUCCINATE
     Route: 040
     Dates: start: 20221004
  15. SOLU-MEDROL [Concomitant]
     Active Substance: METHYLPREDNISOLONE SODIUM SUCCINATE
     Route: 040
     Dates: start: 20221011
  16. SOLU-MEDROL [Concomitant]
     Active Substance: METHYLPREDNISOLONE SODIUM SUCCINATE
     Route: 040
     Dates: start: 20221018
  17. SOLU-MEDROL [Concomitant]
     Active Substance: METHYLPREDNISOLONE SODIUM SUCCINATE
     Route: 040
     Dates: start: 20221025
  18. SOLU-MEDROL [Concomitant]
     Active Substance: METHYLPREDNISOLONE SODIUM SUCCINATE
     Route: 040
     Dates: start: 20221101
  19. SOLU-MEDROL [Concomitant]
     Active Substance: METHYLPREDNISOLONE SODIUM SUCCINATE
     Route: 040
     Dates: start: 20221108
  20. ALLOPURINOL [Concomitant]
     Active Substance: ALLOPURINOL
     Dosage: 300 MILLIGRAM, QD
     Route: 048
  21. METOPROLOL TARTRATE [Concomitant]
     Active Substance: METOPROLOL TARTRATE
     Dosage: 25 MILLIGRAM, BID (WITH FOOD)
     Route: 048
  22. LOSARTAN POTASSIUM [Concomitant]
     Active Substance: LOSARTAN POTASSIUM
     Dosage: 25 MILLIGRAM, QD
     Route: 048
  23. AMBIEN [Concomitant]
     Active Substance: ZOLPIDEM TARTRATE
     Dosage: 10 MILLIGRAM, QD (AT BEDTIME)
     Route: 048
  24. ESTRACE [Concomitant]
     Active Substance: ESTRADIOL
     Route: 067
  25. SYNTHROID [Concomitant]
     Active Substance: LEVOTHYROXINE SODIUM
     Dosage: 125 MICROGRAM, QD (MORNING ON AN EMPTY STOMACH)
     Route: 048
  26. SYNTHROID [Concomitant]
     Active Substance: LEVOTHYROXINE SODIUM
     Route: 048
  27. FLECAINIDE ACETATE [Concomitant]
     Active Substance: FLECAINIDE ACETATE
     Route: 048
  28. FLECAINIDE ACETATE [Concomitant]
     Active Substance: FLECAINIDE ACETATE
     Dosage: 50 MILLIGRAM, BID
     Route: 048
  29. VITAMIN B12 [Concomitant]
     Active Substance: CYANOCOBALAMIN
     Dosage: 50 MICROGRAM, QD
     Route: 048
  30. ASPIRIN [Concomitant]
     Active Substance: ASPIRIN
     Dosage: 81 MILLIGRAM, QD
     Route: 048
  31. POTASSIUM CHLORIDE EXTENDED RELEASE [Concomitant]
     Active Substance: POTASSIUM CHLORIDE
     Dosage: 20 MILLIEQUIVALENT, QD (WITH FOOD)
     Route: 048
  32. FUROSEMIDE [Concomitant]
     Active Substance: FUROSEMIDE
     Dosage: 40 MILLIGRAM, QD
     Route: 048
  33. MINERALS\VITAMINS [Concomitant]
     Active Substance: MINERALS\VITAMINS
     Dosage: UNK UNK, BID (14,320 UNIT-226 MG-200 UNIT )
     Route: 048
  34. COVID-19 vaccine [Concomitant]
     Route: 065
     Dates: start: 20221001
  35. Artificial tears [Concomitant]
     Dosage: UNK UNK, QD
     Route: 065
  36. LANOLIN\PARAFFIN [Concomitant]
     Active Substance: LANOLIN\PARAFFIN
     Route: 065
  37. RESTASIS [Concomitant]
     Active Substance: CYCLOSPORINE
     Dosage: 1 DROP, Q12H ( 0.05 % EYE DROPS IN A DROPPERETTE)
     Route: 047
     Dates: start: 20230206

REACTIONS (38)
  - Deafness neurosensory [Not Recovered/Not Resolved]
  - Endocrine ophthalmopathy [Unknown]
  - Graves^ disease [Unknown]
  - Ophthalmoplegia [Unknown]
  - Cerebral small vessel ischaemic disease [Unknown]
  - Syncope [Unknown]
  - Cerebral atrophy [Unknown]
  - Emotional distress [Unknown]
  - Anxiety [Unknown]
  - Product use complaint [Unknown]
  - Blood urea nitrogen/creatinine ratio decreased [Unknown]
  - Blood chloride decreased [Unknown]
  - Blood creatinine increased [Unknown]
  - Glomerular filtration rate decreased [Unknown]
  - Mean cell haemoglobin increased [Unknown]
  - Mean cell volume increased [Unknown]
  - Blood pressure systolic increased [Unknown]
  - Oral discomfort [Recovering/Resolving]
  - Escherichia test positive [Unknown]
  - Motor dysfunction [Unknown]
  - Urticaria [Unknown]
  - Anosmia [Unknown]
  - Weight fluctuation [Unknown]
  - Sinus disorder [Unknown]
  - Oropharyngeal pain [Unknown]
  - Dysphonia [Unknown]
  - Dysphagia [Unknown]
  - Blood glucose increased [Unknown]
  - Headache [Unknown]
  - Sinusitis [Unknown]
  - Gait disturbance [Unknown]
  - Diplopia [Unknown]
  - Urinary tract infection [Recovered/Resolved]
  - Brain fog [Unknown]
  - Asthenia [Unknown]
  - Alopecia [Unknown]
  - Nail disorder [Unknown]
  - Atrial flutter [Unknown]

NARRATIVE: CASE EVENT DATE: 20200301
